FAERS Safety Report 16427575 (Version 2)
Quarter: 2020Q2

REPORT INFORMATION
  Report Type: Report from Study
  Country: US (occurrence: US)
  Receive Date: 20190613
  Receipt Date: 20200604
  Transmission Date: 20200713
  Serious: Yes (Disabling, Other)
  Sender: FDA-Public Use
  Company Number: US-UCBSA-2017023847

PATIENT
  Age: 55 Year
  Sex: Female

DRUGS (2)
  1. LEVETIRACETAM. [Suspect]
     Active Substance: LEVETIRACETAM
     Indication: EPILEPSY
     Dosage: 1000 MG, 2X/DAY (BID)
     Route: 048
     Dates: start: 20161207
  2. LEVETIRACETAM. [Suspect]
     Active Substance: LEVETIRACETAM
     Indication: PARTIAL SEIZURES
     Dosage: UNK
     Route: 048
     Dates: start: 2005

REACTIONS (8)
  - Muscle injury [Unknown]
  - Product dose omission [Unknown]
  - Abdominal discomfort [Unknown]
  - Dizziness [Unknown]
  - Blood oestrogen increased [Unknown]
  - Headache [Not Recovered/Not Resolved]
  - Road traffic accident [Unknown]
  - Nerve injury [Unknown]

NARRATIVE: CASE EVENT DATE: 2016
